FAERS Safety Report 26119582 (Version 1)
Quarter: 2025Q4

REPORT INFORMATION
  Report Type: Spontaneous
  Country: CA (occurrence: CA)
  Receive Date: 20251204
  Receipt Date: 20251204
  Transmission Date: 20260118
  Serious: Yes (Other)
  Sender: AUROBINDO
  Company Number: CA-AUROBINDO-AUR-APL-2025-060701

PATIENT
  Sex: Male

DRUGS (3)
  1. DEFERASIROX [Suspect]
     Active Substance: DEFERASIROX
     Indication: Sickle cell anaemia
     Dosage: 900 MILLIGRAM, ONCE A DAY
  2. DEFERASIROX [Suspect]
     Active Substance: DEFERASIROX
     Indication: Hepatic iron overload
     Dosage: UNK UNK, ONCE A DAY
     Route: 065
  3. DEFEROXAMINE [Concomitant]
     Active Substance: DEFEROXAMINE MESYLATE
     Indication: Product used for unknown indication
     Dosage: UNK
     Route: 065

REACTIONS (5)
  - Fear of injection [Unknown]
  - Hepatic iron overload [Unknown]
  - Iron overload [Unknown]
  - Sickle cell anaemia [Unknown]
  - Product use issue [Unknown]
